FAERS Safety Report 14015488 (Version 1)
Quarter: 2017Q3

REPORT INFORMATION
  Report Type: Spontaneous
  Country: US (occurrence: US)
  Receive Date: 20170927
  Receipt Date: 20170927
  Transmission Date: 20171128
  Serious: No
  Sender: FDA-Public Use
  Company Number: US-INCYTE CORPORATION-2017IN008037

PATIENT

DRUGS (1)
  1. JAKAFI [Suspect]
     Active Substance: RUXOLITINIB
     Indication: ONCOLOGIC COMPLICATION
     Dosage: 5 MG, BID
     Route: 048
     Dates: start: 20170727

REACTIONS (2)
  - Hypoaesthesia [Unknown]
  - Off label use [Unknown]
